FAERS Safety Report 7178149-2 (Version None)
Quarter: 2010Q4

REPORT INFORMATION
  Report Type: 
  Country: None (occurrence: None)
  Receive Date: 20101220
  Receipt Date: 20101214
  Transmission Date: 20110411
  Serious: Yes (Hospitalization)
  Sender: FDA-Public Use
  Company Number: B0684960B

PATIENT
  Sex: Female
  Weight: 56 kg

DRUGS (7)
  1. TYKERB [Suspect]
     Indication: BREAST CANCER
     Dosage: 1250MG PER DAY
     Route: 048
     Dates: start: 20100531, end: 20100727
  2. TYKERB [Suspect]
     Dosage: 1250MG PER DAY
     Route: 048
     Dates: start: 20100811, end: 20100907
  3. TYKERB [Suspect]
     Dosage: 1250MG PER DAY
     Route: 048
     Dates: start: 20100922, end: 20101114
  4. XELODA [Suspect]
     Dosage: 3000MG PER DAY
     Route: 048
     Dates: start: 20100531, end: 20100602
  5. BETAMETHASONE [Concomitant]
     Indication: DIZZINESS
     Route: 048
     Dates: start: 20100528, end: 20101204
  6. PYDOXAL [Concomitant]
     Indication: PROPHYLAXIS
     Route: 048
     Dates: start: 20100531, end: 20100602
  7. PROMAC [Concomitant]
     Indication: PROPHYLAXIS
     Route: 048
     Dates: start: 20100825

REACTIONS (1)
  - DIZZINESS [None]
